FAERS Safety Report 22074142 (Version 1)
Quarter: 2023Q1

REPORT INFORMATION
  Report Type: Spontaneous
  Country: IT (occurrence: IT)
  Receive Date: 20230308
  Receipt Date: 20230308
  Transmission Date: 20230417
  Serious: Yes (Other)
  Sender: FDA-Public Use
  Company Number: None

PATIENT
  Age: 30 Year
  Sex: Male

DRUGS (14)
  1. ADALIMUMAB [Suspect]
     Active Substance: ADALIMUMAB
     Indication: Psoriatic arthropathy
     Dosage: 40 MILLIGRAM, Q2W
     Route: 065
  2. INFLIXIMAB [Suspect]
     Active Substance: INFLIXIMAB
     Indication: Psoriatic arthropathy
     Dosage: 5 MILLIGRAM/KILOGRAM
     Route: 065
  3. ETANERCEPT [Suspect]
     Active Substance: ETANERCEPT
     Indication: Erythrodermic psoriasis
     Dosage: 50 MG, Q2W, INDUCTION DOSAGE
     Route: 065
  4. ETANERCEPT [Suspect]
     Active Substance: ETANERCEPT
     Dosage: 50 MILLIGRAM, QW MAINTENANCE DOSE
     Route: 065
  5. ETANERCEPT [Suspect]
     Active Substance: ETANERCEPT
     Dosage: 50 MILLIGRAM, QW (50 MG, Q WEEK)
     Route: 065
  6. ETANERCEPT [Suspect]
     Active Substance: ETANERCEPT
     Dosage: 50 MILLIGRAM, 0.5 WEEK
     Route: 065
  7. ETANERCEPT [Suspect]
     Active Substance: ETANERCEPT
     Dosage: 50 MILLIGRAM, 0.5 WEEK AS OFF LABEL REGIMEN
     Route: 065
  8. PREDNISONE [Suspect]
     Active Substance: PREDNISONE
     Indication: Erythrodermic psoriasis
     Dosage: 25 MILLIGRAM, QD
     Route: 048
  9. METHOTREXATE [Suspect]
     Active Substance: METHOTREXATE
     Indication: Psoriatic arthropathy
     Dosage: 15 MILLIGRAM, QW
     Route: 065
  10. CYCLOSPORINE [Suspect]
     Active Substance: CYCLOSPORINE
     Indication: Erythrodermic psoriasis
     Dosage: 150-200 MG/QD
     Route: 065
  11. CYCLOSPORINE [Suspect]
     Active Substance: CYCLOSPORINE
     Indication: Psoriatic arthropathy
     Dosage: 150-200 MG/QD
     Route: 065
  12. ACITRETIN [Suspect]
     Active Substance: ACITRETIN
     Indication: Erythrodermic psoriasis
     Dosage: 25 MILLIGRAM, QD
     Route: 065
  13. USTEKINUMAB [Suspect]
     Active Substance: USTEKINUMAB
     Indication: Erythrodermic psoriasis
     Dosage: 90 MILLIGRAM
     Route: 065
  14. SECUKINUMAB [Concomitant]
     Active Substance: SECUKINUMAB
     Indication: Erythrodermic psoriasis
     Dosage: 300 MILLIGRAM
     Route: 065

REACTIONS (9)
  - Hepatic enzyme increased [Recovering/Resolving]
  - Renal failure [Unknown]
  - Psoriasis [Recovered/Resolved]
  - Cushing^s syndrome [Recovering/Resolving]
  - Dyslipidaemia [Recovering/Resolving]
  - Treatment failure [Unknown]
  - Concomitant disease progression [Unknown]
  - Hypertension [Unknown]
  - Off label use [Unknown]
